FAERS Safety Report 17242374 (Version 5)
Quarter: 2022Q4

REPORT INFORMATION
  Report Type: Report from Study
  Country: US (occurrence: US)
  Receive Date: 20200107
  Receipt Date: 20221124
  Transmission Date: 20230113
  Serious: Yes (Other)
  Sender: FDA-Public Use
  Company Number: US-PFIZER INC-2020002573

PATIENT

DRUGS (5)
  1. VINCRISTINE SULFATE [Suspect]
     Active Substance: VINCRISTINE SULFATE
     Indication: Acute lymphocytic leukaemia
     Dosage: 1.5 MG/M2; MAXIMUM OF 2 MG, CYCLIC (ON DAYS 1, 2, 8, 9, 15, AND 16)
     Route: 040
  2. DEXAMETHASONE [Suspect]
     Active Substance: DEXAMETHASONE
     Indication: Acute lymphocytic leukaemia
     Dosage: 6 MG/M2 PER DAY, CYCLIC, ON DAYS 1-21
     Route: 048
  3. DAUNORUBICIN [Suspect]
     Active Substance: DAUNORUBICIN
     Indication: Acute lymphocytic leukaemia
     Dosage: 25 MG/M2, CYCLIC, ON DAYS1,8,15,AND 22
     Route: 040
  4. CARFILZOMIB [Suspect]
     Active Substance: CARFILZOMIB
     Indication: Acute lymphocytic leukaemia
     Dosage: 36 MG/M2, CYCLIC (ON DAYS 1, 2, 8, 9, 15, AND 16), IV INFUSION
  5. PEG/L-ASPARAGINASE [Suspect]
     Active Substance: PEGASPARGASE
     Indication: Acute lymphocytic leukaemia
     Dosage: 2500 U/M2, CYCLIC (ON DAYS 4 AND 18) OVER 60-120 MINUTES
     Route: 042

REACTIONS (1)
  - Posterior reversible encephalopathy syndrome [Recovered/Resolved]
